FAERS Safety Report 5068629-8 (Version None)
Quarter: 2006Q3

REPORT INFORMATION
  Report Type: 
  Country: None (occurrence: None)
  Receive Date: 20060802
  Receipt Date: 20060113
  Transmission Date: 20061208
  Serious: No
  Sender: FDA-Public Use
  Company Number: US-BRISTOL-MYERS SQUIBB COMPANY-13247697

PATIENT

DRUGS (3)
  1. COUMADIN [Suspect]
     Indication: DEEP VEIN THROMBOSIS
     Dates: start: 20050901
  2. CONTRACEPTIVE [Concomitant]
     Route: 048
  3. FLUOROQUINOLONE [Concomitant]

REACTIONS (1)
  - RASH MACULAR [None]
